FAERS Safety Report 5939283-5 (Version None)
Quarter: 2008Q4

REPORT INFORMATION
  Report Type: 
  Country: None (occurrence: None)
  Receive Date: 20081103
  Receipt Date: 20081015
  Transmission Date: 20090506
  Serious: Yes (Other)
  Sender: FDA-Public Use
  Company Number: PHHY2008DE24979

PATIENT

DRUGS (2)
  1. EXELON [Suspect]
     Dosage: 9.5 MG/24 HOURS
     Route: 062
  2. L-DOPA [Concomitant]

REACTIONS (2)
  - BLADDER CATHETERISATION [None]
  - URINARY RETENTION [None]
